FAERS Safety Report 10192784 (Version 2)
Quarter: 2014Q2

REPORT INFORMATION
  Report Type: Spontaneous
  Country: KR (occurrence: KR)
  Receive Date: 20140523
  Receipt Date: 20140605
  Transmission Date: 20141212
  Serious: Yes (Other)
  Sender: FDA-Public Use
  Company Number: KR-PFIZER INC-2014136951

PATIENT
  Age: 25 Year
  Sex: Female

DRUGS (1)
  1. ZITHROMAX [Suspect]
     Indication: FUNGAL INFECTION
     Dosage: 1 G (4 TABLET OF 250 MG), ONE TIME ADMINISTRATION
     Route: 048
     Dates: start: 20140517, end: 20140517

REACTIONS (3)
  - Diarrhoea haemorrhagic [Unknown]
  - Abdominal pain [Unknown]
  - Cold sweat [Unknown]
